FAERS Safety Report 4990148-5 (Version None)
Quarter: 2006Q2

REPORT INFORMATION
  Report Type: 
  Country: None (occurrence: None)
  Receive Date: 20060501
  Receipt Date: 20060501
  Transmission Date: 20061013
  Serious: Yes (Hospitalization)
  Sender: FDA-Public Use
  Company Number: None

PATIENT
  Sex: Male
  Weight: 93.6 kg

DRUGS (1)
  1. SUTENT [Suspect]
     Indication: RENAL CELL CARCINOMA STAGE UNSPECIFIED
     Dosage: 50 MG DAILY PO
     Route: 048

REACTIONS (5)
  - HYPOTENSION [None]
  - MENTAL STATUS CHANGES [None]
  - NAUSEA [None]
  - TACHYCARDIA [None]
  - VOMITING [None]
